FAERS Safety Report 5397209-X (Version None)
Quarter: 2007Q3

REPORT INFORMATION
  Report Type: 
  Country: None (occurrence: None)
  Receive Date: 20070723
  Receipt Date: 20070712
  Transmission Date: 20080115
  Serious: Yes (Hospitalization)
  Sender: FDA-Public Use
  Company Number: 2007BI013195

PATIENT
  Age: 46 Year
  Sex: Female

DRUGS (1)
  1. AVONEX [Suspect]
     Indication: MULTIPLE SCLEROSIS
     Dosage: 30 UG; QW; IM
     Route: 030
     Dates: start: 20040822, end: 20070501

REACTIONS (8)
  - ANKLE FRACTURE [None]
  - ASTHENIA [None]
  - COORDINATION ABNORMAL [None]
  - FALL [None]
  - FIBULA FRACTURE [None]
  - MULTIPLE SCLEROSIS RELAPSE [None]
  - NO THERAPEUTIC RESPONSE [None]
  - WRIST FRACTURE [None]
